FAERS Safety Report 6557481-7 (Version None)
Quarter: 2010Q1

REPORT INFORMATION
  Report Type: 
  Country: None (occurrence: None)
  Receive Date: 20100129
  Receipt Date: 20100122
  Transmission Date: 20100710
  Serious: Yes (Hospitalization)
  Sender: FDA-Public Use
  Company Number: JP-ROCHE-597778

PATIENT
  Sex: Female

DRUGS (16)
  1. TOCILIZUMAB [Suspect]
     Indication: JUVENILE ARTHRITIS
     Route: 041
     Dates: start: 20080707
  2. PREDONINE [Suspect]
     Indication: JUVENILE ARTHRITIS
     Dosage: DOSE DECREASED
     Route: 048
     Dates: end: 20080525
  3. PREDONINE [Suspect]
     Dosage: DOSE DECREASED
     Route: 048
     Dates: start: 20080526, end: 20080706
  4. PREDONINE [Suspect]
     Dosage: DOSE DECREASED
     Route: 048
     Dates: start: 20080707, end: 20081019
  5. PREDONINE [Suspect]
     Route: 048
     Dates: start: 20081020, end: 20081030
  6. PREDONINE [Suspect]
     Route: 048
     Dates: start: 20081110, end: 20081124
  7. PREDONINE [Suspect]
     Route: 048
     Dates: start: 20081125, end: 20090107
  8. PREDONINE [Suspect]
     Route: 048
     Dates: start: 20090108, end: 20090215
  9. PREDONINE [Suspect]
     Route: 048
     Dates: start: 20090216, end: 20090325
  10. PREDONINE [Suspect]
     Route: 048
     Dates: start: 20090326, end: 20090517
  11. PREDONINE [Suspect]
     Route: 048
     Dates: start: 20090518
  12. NEORAL [Concomitant]
     Route: 048
     Dates: end: 20080907
  13. NEORAL [Concomitant]
     Route: 048
     Dates: start: 20080908, end: 20081030
  14. NEORAL [Concomitant]
     Route: 048
     Dates: start: 20081110, end: 20090607
  15. NEORAL [Concomitant]
     Route: 048
     Dates: start: 20090608
  16. SELBEX [Concomitant]
     Dosage: FORM: ORAL FORMULATION (NOT OTHERWISE SPECIFIED)
     Route: 048
     Dates: end: 20081106

REACTIONS (5)
  - DIARRHOEA [None]
  - HISTIOCYTOSIS HAEMATOPHAGIC [None]
  - PHARYNGITIS [None]
  - UPPER RESPIRATORY TRACT INFLAMMATION [None]
  - VOMITING [None]
